FAERS Safety Report 7796437-3 (Version None)
Quarter: 2011Q4

REPORT INFORMATION
  Report Type: 
  Country: None (occurrence: None)
  Receive Date: 20111005
  Receipt Date: 20110927
  Transmission Date: 20120403
  Serious: No
  Sender: FDA-Public Use
  Company Number: US-BIOGENIDEC-2011BI037192

PATIENT
  Age: 46 Year
  Sex: Female

DRUGS (3)
  1. TYSABRI [Suspect]
     Indication: MULTIPLE SCLEROSIS
     Route: 042
     Dates: start: 20110606
  2. TYSABRI [Suspect]
     Route: 042
     Dates: start: 20091231, end: 20110117
  3. TYSABRI [Suspect]
     Route: 042
     Dates: start: 20080130, end: 20081120

REACTIONS (1)
  - HEADACHE [None]
